FAERS Safety Report 6240415-2 (Version None)
Quarter: 2009Q2

REPORT INFORMATION
  Report Type: 
  Country: None (occurrence: None)
  Receive Date: 20090623
  Receipt Date: 20090610
  Transmission Date: 20091009
  Serious: Yes (Hospitalization)
  Sender: FDA-Public Use
  Company Number: KR-JNJFOC-20090606908

PATIENT
  Age: 27 Year
  Sex: Male

DRUGS (7)
  1. RISPERIDONE [Suspect]
     Route: 065
  2. RISPERIDONE [Suspect]
     Indication: BIPOLAR I DISORDER
     Route: 065
  3. LAMOTRIGINE [Suspect]
     Route: 065
  4. LAMOTRIGINE [Suspect]
     Indication: DRUG USE FOR UNKNOWN INDICATION
     Route: 065
  5. CLOZAPINE [Suspect]
     Route: 065
  6. CLOZAPINE [Suspect]
     Route: 065
  7. CLOZAPINE [Suspect]
     Indication: DRUG USE FOR UNKNOWN INDICATION
     Route: 065

REACTIONS (3)
  - AGRANULOCYTOSIS [None]
  - DEPRESSED MOOD [None]
  - HALLUCINATION, AUDITORY [None]
